FAERS Safety Report 6980909-5 (Version None)
Quarter: 2010Q3

REPORT INFORMATION
  Report Type: 
  Country: None (occurrence: None)
  Receive Date: 20100914
  Receipt Date: 20100910
  Transmission Date: 20110219
  Serious: Yes (Hospitalization)
  Sender: FDA-Public Use
  Company Number: A0867035A

PATIENT
  Age: 37 Year
  Sex: Male
  Weight: 95.5 kg

DRUGS (2)
  1. SUMATRIPTAN [Suspect]
     Indication: CLUSTER HEADACHE
     Dosage: 6MG AS REQUIRED
     Route: 065
     Dates: start: 20100201, end: 20100101
  2. NO CONCURRENT MEDICATIONS [Concomitant]

REACTIONS (4)
  - ABSCESS [None]
  - STAPHYLOCOCCAL INFECTION [None]
  - SUBCUTANEOUS ABSCESS [None]
  - SURGERY [None]
